FAERS Safety Report 19350174 (Version 1)
Quarter: 2021Q2

REPORT INFORMATION
  Report Type: Spontaneous
  Country: US (occurrence: US)
  Receive Date: 20210601
  Receipt Date: 20210601
  Transmission Date: 20210717
  Serious: Yes (Death)
  Sender: FDA-Public Use
  Company Number: None

PATIENT
  Age: 87 Year
  Sex: Female
  Weight: 60.75 kg

DRUGS (12)
  1. DONEPEZIL 10MG [Concomitant]
     Active Substance: DONEPEZIL
  2. FERROUS SULFATE 325MG [Concomitant]
     Active Substance: FERROUS SULFATE
  3. BOSULIF [Suspect]
     Active Substance: BOSUTINIB MONOHYDRATE
     Indication: CHRONIC MYELOID LEUKAEMIA
     Route: 048
     Dates: start: 20210511, end: 20210524
  4. VITAMIN D [Concomitant]
     Active Substance: VITAMIN D NOS
  5. FAMOTIDINE 40MG [Concomitant]
     Active Substance: FAMOTIDINE
  6. MUPIROCIN 2% [Concomitant]
     Active Substance: MUPIROCIN
  7. PRAVASTATIN. [Concomitant]
     Active Substance: PRAVASTATIN
  8. LEVETIRACETAM 250MG [Concomitant]
     Active Substance: LEVETIRACETAM
  9. ENALAPRIL MALEATE 10MG [Concomitant]
  10. HYDROCORTISONE 2.5% [Concomitant]
     Active Substance: HYDROCORTISONE
  11. NYSTATIN. [Concomitant]
     Active Substance: NYSTATIN
  12. ASPIRIN 81MG [Concomitant]
     Active Substance: ASPIRIN

REACTIONS (1)
  - Death [None]

NARRATIVE: CASE EVENT DATE: 20210524
